FAERS Safety Report 9802876 (Version 1)
Quarter: 2014Q1

REPORT INFORMATION
  Report Type: Spontaneous
  Country: US (occurrence: None)
  Receive Date: 20140106
  Receipt Date: 20140106
  Transmission Date: 20141002
  Serious: Yes (Death, Hospitalization)
  Sender: FDA-Public Use
  Company Number: None

PATIENT
  Age: 11 Year
  Sex: Male
  Weight: 93.3 kg

DRUGS (1)
  1. PEG-L-ASPARAGINASE (PEGASPARGASE, ONCOSPAR) [Suspect]
     Dates: end: 20131214

REACTIONS (17)
  - Dehydration [None]
  - Haemorrhage [None]
  - Haemoptysis [None]
  - Pyrexia [None]
  - Disseminated intravascular coagulation [None]
  - Cerebrovascular accident [None]
  - Intracranial venous sinus thrombosis [None]
  - Infarction [None]
  - Atrial thrombosis [None]
  - Thrombosis [None]
  - Streptococcus test positive [None]
  - Hypotension [None]
  - Cerebral haemorrhage [None]
  - Bradycardia [None]
  - Multi-organ disorder [None]
  - Embolism [None]
  - Cerebral ischaemia [None]
